FAERS Safety Report 7130126-3 (Version None)
Quarter: 2010Q4

REPORT INFORMATION
  Report Type: 
  Country: None (occurrence: None)
  Receive Date: 20101201
  Receipt Date: 20101116
  Transmission Date: 20110411
  Serious: Yes (Other)
  Sender: FDA-Public Use
  Company Number: US-CELGENEUS-163-21880-10040800

PATIENT
  Sex: Male

DRUGS (4)
  1. REVLIMID [Suspect]
     Indication: MULTIPLE MYELOMA
     Route: 048
     Dates: start: 20090330, end: 20090429
  2. REVLIMID [Suspect]
     Route: 048
     Dates: start: 20100315
  3. REVLIMID [Suspect]
     Route: 048
     Dates: start: 20100701
  4. REVLIMID [Suspect]
     Route: 048
     Dates: start: 20100901

REACTIONS (7)
  - CONTUSION [None]
  - FATIGUE [None]
  - FULL BLOOD COUNT DECREASED [None]
  - HAEMORRHAGE [None]
  - HEADACHE [None]
  - RASH PRURITIC [None]
  - RESPIRATORY TRACT INFECTION VIRAL [None]
